FAERS Safety Report 22819054 (Version 3)
Quarter: 2024Q1

REPORT INFORMATION
  Report Type: Spontaneous
  Country: AU (occurrence: AU)
  Receive Date: 20230814
  Receipt Date: 20240116
  Transmission Date: 20240410
  Serious: Yes (Hospitalization)
  Sender: FDA-Public Use
  Company Number: AU-KOREA IPSEN Pharma-2023-19035

PATIENT
  Sex: Male
  Weight: 78.8 kg

DRUGS (1)
  1. CABOMETYX [Suspect]
     Active Substance: CABOZANTINIB S-MALATE
     Indication: Renal cell carcinoma
     Dosage: 60 MG
     Route: 048

REACTIONS (5)
  - Infection [Unknown]
  - Orthostatic hypotension [Recovered/Resolved]
  - Paraneoplastic encephalomyelitis [Recovered/Resolved]
  - Urinary retention [Not Recovered/Not Resolved]
  - Diarrhoea [Unknown]
